FAERS Safety Report 8486046-5 (Version None)
Quarter: 2012Q3

REPORT INFORMATION
  Report Type: 
  Country: None (occurrence: None)
  Receive Date: 20120703
  Receipt Date: 20120625
  Transmission Date: 20120928
  Serious: Yes (Hospitalization, Other)
  Sender: FDA-Public Use
  Company Number: FR-NOVOPROD-352426

PATIENT
  Age: 46 Year
  Sex: Female
  Weight: 103 kg

DRUGS (8)
  1. VICTOZA [Suspect]
     Indication: TYPE 2 DIABETES MELLITUS
     Dosage: 1.8 MG, QD
     Route: 058
     Dates: start: 20110415, end: 20120213
  2. AREDIA [Concomitant]
     Dosage: 60 MG, QD
     Route: 042
     Dates: start: 20120209, end: 20120210
  3. GLUCOPHAGE [Concomitant]
     Dosage: 3 G, QD
     Route: 048
     Dates: start: 19950101, end: 20120213
  4. ATORVASTATIN [Concomitant]
     Dosage: 10 MG, QD
     Route: 048
     Dates: start: 20040101, end: 20120213
  5. GLUCOPHAGE [Concomitant]
     Dosage: 3 G, QD
     Route: 048
     Dates: start: 20120326
  6. KARDEGIC [Concomitant]
     Dosage: 75 MG, QD
     Route: 048
     Dates: start: 20040101
  7. LISINOPRIL [Concomitant]
     Dosage: 20 MG, QD
     Route: 048
     Dates: start: 20040101
  8. VICTOZA [Suspect]
     Dosage: 1.8 MG, QD
     Route: 058
     Dates: start: 20120411, end: 20120416

REACTIONS (1)
  - HEPATITIS [None]
